FAERS Safety Report 23547101 (Version 1)
Quarter: 2024Q1

REPORT INFORMATION
  Report Type: Spontaneous
  Country: PL (occurrence: PL)
  Receive Date: 20240221
  Receipt Date: 20240221
  Transmission Date: 20240410
  Serious: Yes (Life-Threatening, Hospitalization)
  Sender: FDA-Public Use
  Company Number: PL-POLPHARMA-IMP6000627

PATIENT
  Age: 66 Year
  Sex: Male

DRUGS (5)
  1. FUROSEMIDE [Suspect]
     Active Substance: FUROSEMIDE
     Indication: Hypercalcaemia
     Dosage: UNK (ON THE 10TH DAY OF HOSPITALISATION FORCED DIURESIS WITH FUROSEMID WAS INITIATED)
     Route: 065
  2. SODIUM CHLORIDE [Suspect]
     Active Substance: SODIUM CHLORIDE
     Indication: Hypercalcaemia
     Dosage: UNK (ON THE 10TH DAY OF HOSPITALISATION INTENSIVE FLUID THERAPY WITH 0.9% NACL WAS INITIATED)
     Route: 065
  3. HYDROCORTISONE [Suspect]
     Active Substance: HYDROCORTISONE
     Indication: Hypercalcaemia
     Dosage: 100 MILLIGRAM, FOUR TIMES/DAY (EVERY 6 HOURS)
     Route: 042
  4. PAMIDRONATE DISODIUM [Suspect]
     Active Substance: PAMIDRONATE DISODIUM
     Indication: Hypercalcaemia
     Dosage: 60 MILLIGRAM
     Route: 042
  5. PAMIDRONATE DISODIUM [Suspect]
     Active Substance: PAMIDRONATE DISODIUM
     Dosage: 30 MILLIGRAM
     Route: 065

REACTIONS (1)
  - Drug ineffective [Unknown]
